FAERS Safety Report 4550695-7 (Version None)
Quarter: 2004Q4

REPORT INFORMATION
  Report Type: 
  Country: None (occurrence: None)
  Receive Date: 20041217
  Receipt Date: 20041027
  Transmission Date: 20050328
  Serious: No
  Sender: FDA-Public Use
  Company Number: 2004-BP-10852BP(0)

PATIENT
  Sex: Female

DRUGS (1)
  1. SPIRIVA [Suspect]
     Indication: CHRONIC OBSTRUCTIVE AIRWAYS DISEASE
     Dosage: 18 MCG (18 MCG, 18 MCG ONCE DAILY) IH
     Route: 055
     Dates: start: 20040927, end: 20041025

REACTIONS (6)
  - DRY EYE [None]
  - DRY MOUTH [None]
  - DRY THROAT [None]
  - EYE PRURITUS [None]
  - FATIGUE [None]
  - OEDEMA MOUTH [None]
